FAERS Safety Report 7645473-6 (Version None)
Quarter: 2011Q3

REPORT INFORMATION
  Report Type: 
  Country: None (occurrence: None)
  Receive Date: 20110729
  Receipt Date: 20110719
  Transmission Date: 20111222
  Serious: No
  Sender: FDA-Public Use
  Company Number: CA-ELI_LILLY_AND_COMPANY-CA201107004948

PATIENT
  Sex: Female

DRUGS (3)
  1. SEROQUEL [Concomitant]
  2. ZYPREXA [Suspect]
     Indication: SCHIZOPHRENIA
     Dosage: 10 MG, EACH EVENING
     Dates: start: 19980701, end: 20020620
  3. FLUOXETINE [Concomitant]

REACTIONS (11)
  - DIABETES MELLITUS [None]
  - INSOMNIA [None]
  - WEIGHT INCREASED [None]
  - VISUAL ACUITY REDUCED [None]
  - HYPERTENSION [None]
  - MICROCYTIC ANAEMIA [None]
  - ANXIETY [None]
  - FATIGUE [None]
  - ASTHENIA [None]
  - HYPOAESTHESIA [None]
  - FEAR [None]
